FAERS Safety Report 25074696 (Version 1)
Quarter: 2025Q1

REPORT INFORMATION
  Report Type: Spontaneous
  Country: US (occurrence: US)
  Receive Date: 20250313
  Receipt Date: 20250313
  Transmission Date: 20250409
  Serious: Yes (Other)
  Sender: DR REDDYS
  Company Number: US-DRL-USA-USA/2025/03/003502

PATIENT
  Age: 24 Year
  Sex: Female

DRUGS (2)
  1. ZENATANE [Suspect]
     Active Substance: ISOTRETINOIN
     Indication: Acne
     Dates: start: 20240101, end: 20240831
  2. CLARAVIS [Suspect]
     Active Substance: ISOTRETINOIN
     Indication: Product used for unknown indication

REACTIONS (12)
  - Loss of consciousness [Unknown]
  - Lip dry [Unknown]
  - Skin discomfort [Unknown]
  - Sensitive skin [Unknown]
  - Condition aggravated [Unknown]
  - Brain fog [Unknown]
  - Depression [Unknown]
  - Anxiety [Unknown]
  - Rash macular [Unknown]
  - Erythema [Unknown]
  - Meibomian gland dysfunction [Unknown]
  - Rash [Unknown]

NARRATIVE: CASE EVENT DATE: 20240313
